FAERS Safety Report 16549160 (Version 1)
Quarter: 2019Q3

REPORT INFORMATION
  Report Type: Spontaneous
  Country: US (occurrence: US)
  Receive Date: 20190709
  Receipt Date: 20190709
  Transmission Date: 20191004
  Serious: No
  Sender: FDA-Public Use
  Company Number: US-SUNOVION-2019SUN002782

PATIENT
  Sex: Female

DRUGS (1)
  1. APTIOM [Suspect]
     Active Substance: ESLICARBAZEPINE ACETATE
     Dosage: 800 MG, QD
     Route: 048

REACTIONS (1)
  - Visual impairment [Unknown]
